FAERS Safety Report 6749486-8 (Version None)
Quarter: 2010Q2

REPORT INFORMATION
  Report Type: 
  Country: None (occurrence: None)
  Receive Date: 20100601
  Receipt Date: 20100526
  Transmission Date: 20101027
  Serious: Yes (Death, Hospitalization)
  Sender: FDA-Public Use
  Company Number: JP-BAYER-201011853BYL

PATIENT
  Age: 77 Year
  Sex: Male
  Weight: 59 kg

DRUGS (13)
  1. NEXAVAR [Suspect]
     Indication: HEPATIC NEOPLASM MALIGNANT
     Dosage: TOTAL DAILY DOSE: 800 MG  UNIT DOSE: 200 MG
     Route: 048
     Dates: start: 20100331, end: 20100413
  2. NEXAVAR [Suspect]
     Dosage: UNIT DOSE: 200 MG
     Route: 048
     Dates: start: 20100426, end: 20100516
  3. OLMESARTAN MEDOXOMIL [Suspect]
     Indication: DRUG USE FOR UNKNOWN INDICATION
     Route: 048
     Dates: start: 20100330
  4. AMLODIN OD [Concomitant]
     Route: 048
  5. OMEPRAL [Concomitant]
     Route: 065
  6. VESICARE [Concomitant]
     Route: 048
  7. CARNACULIN [Concomitant]
     Route: 048
  8. ADONA [Concomitant]
     Route: 065
  9. HYALEIN [Concomitant]
     Route: 031
  10. DICLOD [Concomitant]
     Route: 031
  11. RINDERON-VG [Concomitant]
     Route: 061
  12. KETOPROFEN [Concomitant]
     Route: 062
  13. VOLTAREN [Concomitant]
     Route: 062

REACTIONS (4)
  - BLOOD GLUCOSE DECREASED [None]
  - HYPERKALAEMIA [None]
  - HYPOGLYCAEMIA [None]
  - RESPIRATORY FAILURE [None]
